FAERS Safety Report 10842326 (Version 2)
Quarter: 2015Q2

REPORT INFORMATION
  Report Type: Spontaneous
  Country: US (occurrence: US)
  Receive Date: 20150220
  Receipt Date: 20150407
  Transmission Date: 20150821
  Serious: No
  Sender: FDA-Public Use
  Company Number: US-PFIZER INC-2015060639

PATIENT
  Age: 65 Year
  Sex: Male

DRUGS (3)
  1. NITROSTAT [Suspect]
     Active Substance: NITROGLYCERIN
     Dosage: UNK, AS NEEDED
     Route: 060
     Dates: start: 201502
  2. SPIRIVA [Concomitant]
     Active Substance: TIOTROPIUM BROMIDE MONOHYDRATE
     Dosage: 18 ?G, UNK
  3. BUDESONIDE. [Concomitant]
     Active Substance: BUDESONIDE
     Dosage: (0.5 MG / 2 ML)

REACTIONS (2)
  - Drug ineffective [Unknown]
  - Product quality issue [Unknown]

NARRATIVE: CASE EVENT DATE: 201502
